FAERS Safety Report 8486480-3 (Version None)
Quarter: 2012Q3

REPORT INFORMATION
  Report Type: 
  Country: None (occurrence: None)
  Receive Date: 20120703
  Receipt Date: 20120628
  Transmission Date: 20120928
  Serious: No
  Sender: FDA-Public Use
  Company Number: US-BAYER-2012-065462

PATIENT
  Age: 44 Year
  Sex: Male
  Weight: 76 kg

DRUGS (2)
  1. DILANTIN [Concomitant]
  2. ALEVE (CAPLET) [Suspect]
     Indication: BACK PAIN
     Dosage: 1 U, QOD
     Route: 048
     Dates: start: 20111201, end: 20120625

REACTIONS (4)
  - NO ADVERSE EVENT [None]
  - FAECES DISCOLOURED [None]
  - ABDOMINAL PAIN UPPER [None]
  - VOMITING [None]
